FAERS Safety Report 9192197 (Version 1)
Quarter: 2013Q1

REPORT INFORMATION
  Report Type: Report from Study
  Country: US (occurrence: US)
  Receive Date: 20130327
  Receipt Date: 20130327
  Transmission Date: 20140127
  Serious: Yes (Hospitalization)
  Sender: FDA-Public Use
  Company Number: US-JNJFOC-20130313976

PATIENT
  Age: 14 Year
  Sex: Male
  Weight: 42 kg

DRUGS (7)
  1. REMICADE [Suspect]
     Indication: CROHN^S DISEASE
     Route: 042
     Dates: start: 20090306
  2. 5-ASA [Concomitant]
     Route: 048
  3. HUMIRA [Concomitant]
     Route: 065
     Dates: start: 20091111
  4. VITAMIN D [Concomitant]
     Route: 065
  5. FERROUS SULFATE [Concomitant]
     Route: 065
  6. MULTIVITAMIN [Concomitant]
     Route: 065
  7. ANTIBIOTICS [Concomitant]
     Indication: INFLAMMATORY BOWEL DISEASE
     Route: 065

REACTIONS (1)
  - Pancreatitis [Recovered/Resolved]
